FAERS Safety Report 25734256 (Version 1)
Quarter: 2025Q3

REPORT INFORMATION
  Report Type: Spontaneous
  Country: KR (occurrence: KR)
  Receive Date: 20250828
  Receipt Date: 20250828
  Transmission Date: 20251021
  Serious: Yes (Other)
  Sender: JOHNSON AND JOHNSON
  Company Number: KR-JNJFOC-20250833159

PATIENT

DRUGS (3)
  1. LAZERTINIB [Suspect]
     Active Substance: LAZERTINIB
     Indication: Non-small cell lung cancer
     Route: 048
  2. LAZERTINIB [Suspect]
     Active Substance: LAZERTINIB
     Route: 048
  3. LAZERTINIB [Suspect]
     Active Substance: LAZERTINIB
     Route: 048

REACTIONS (2)
  - Nephropathy toxic [Unknown]
  - Renal impairment [Unknown]
